FAERS Safety Report 7841657-2 (Version None)
Quarter: 2011Q4

REPORT INFORMATION
  Report Type: 
  Country: None (occurrence: None)
  Receive Date: 20111025
  Receipt Date: 20111018
  Transmission Date: 20120403
  Serious: Yes (Other)
  Sender: FDA-Public Use
  Company Number: US-BAYER-2011-064362

PATIENT
  Age: 55 Year
  Sex: Male

DRUGS (4)
  1. NEXAVAR [Suspect]
     Indication: HEPATIC NEOPLASM MALIGNANT
     Dosage: 400 MG, BID
     Dates: start: 20110706
  2. NEXAVAR [Suspect]
     Dosage: 200 MG QD
     Route: 048
  3. NEXAVAR [Suspect]
     Dosage: 200 MG, BID
     Dates: start: 20110701
  4. NEXAVAR [Suspect]
     Dosage: 200 MG TID

REACTIONS (5)
  - HALLUCINATION [None]
  - ABNORMAL BEHAVIOUR [None]
  - BLISTER [None]
  - CONFUSIONAL STATE [None]
  - THROAT IRRITATION [None]
